FAERS Safety Report 6208934-2 (Version None)
Quarter: 2009Q2

REPORT INFORMATION
  Report Type: 
  Country: None (occurrence: None)
  Receive Date: 20090529
  Receipt Date: 20090514
  Transmission Date: 20091009
  Serious: Yes (Other)
  Sender: FDA-Public Use
  Company Number: GB-MERCK-0704GBR00253

PATIENT
  Age: 9 Year
  Sex: Male
  Weight: 38 kg

DRUGS (5)
  1. SINGULAIR [Suspect]
     Indication: ASTHMA
     Route: 048
     Dates: start: 20060101, end: 20070101
  2. SINGULAIR [Suspect]
     Route: 048
     Dates: start: 20060101, end: 20061001
  3. FLUTICASONE PROPIONATE [Concomitant]
     Indication: ASTHMA
     Route: 065
     Dates: start: 20060921, end: 20061001
  4. FLUTICASONE PROPIONATE [Concomitant]
     Route: 065
     Dates: start: 20060924
  5. FLUTICASONE PROPIONATE [Concomitant]
     Route: 065
     Dates: start: 20060101

REACTIONS (25)
  - ABDOMINAL PAIN UPPER [None]
  - ABNORMAL BEHAVIOUR [None]
  - ANXIETY [None]
  - APHASIA [None]
  - BIPOLAR DISORDER [None]
  - CHILLS [None]
  - CRYING [None]
  - DECREASED INTEREST [None]
  - DEPRESSION [None]
  - EMOTIONAL DISTRESS [None]
  - FEAR [None]
  - FEELING ABNORMAL [None]
  - HALLUCINATION, VISUAL [None]
  - HEAD DISCOMFORT [None]
  - MENTAL IMPAIRMENT [None]
  - MUSCLE TWITCHING [None]
  - NIGHTMARE [None]
  - PALLOR [None]
  - PANIC ATTACK [None]
  - POST-TRAUMATIC STRESS DISORDER [None]
  - SCREAMING [None]
  - SUICIDAL IDEATION [None]
  - TEARFULNESS [None]
  - WHEEZING [None]
  - WITHDRAWAL SYNDROME [None]
